FAERS Safety Report 7493620-1 (Version None)
Quarter: 2011Q2

REPORT INFORMATION
  Report Type: 
  Country: None (occurrence: None)
  Receive Date: 20110520
  Receipt Date: 20110517
  Transmission Date: 20111010
  Serious: Yes (Death, Hospitalization, Other)
  Sender: FDA-Public Use
  Company Number: PHHY2009GB14703

PATIENT
  Sex: Male
  Weight: 90 kg

DRUGS (11)
  1. METOLAZONE [Concomitant]
     Dosage: UNK
  2. CLOZARIL [Suspect]
     Dosage: 300 MG, QD
     Route: 048
     Dates: start: 20070606, end: 20100526
  3. RAMIPRIL [Concomitant]
     Dosage: UNK
  4. ASPIRIN [Concomitant]
     Dosage: UNK
  5. VALPROATE SODIUM [Suspect]
     Indication: DROP ATTACKS
     Dosage: 1 G, UNK
     Route: 048
     Dates: start: 20080701
  6. BUMETANIDE [Concomitant]
     Dosage: UNK
  7. ARIPIPRAZOLE [Concomitant]
     Dosage: UNK
  8. ANAPRIL [Concomitant]
     Dosage: UNK
  9. METOPROLOL TARTRATE [Concomitant]
     Dosage: UNK
  10. CLOPIDOGREL [Concomitant]
     Dosage: UNK
  11. VALPROATE SODIUM [Suspect]
     Indication: MYOCLONIC EPILEPSY

REACTIONS (14)
  - PAIN IN EXTREMITY [None]
  - OEDEMA PERIPHERAL [None]
  - MYOCLONUS [None]
  - HALLUCINATION, AUDITORY [None]
  - CARDIAC FAILURE [None]
  - THROMBOCYTOPENIA [None]
  - SCHIZOPHRENIA [None]
  - MUSCULAR WEAKNESS [None]
  - HYPOAESTHESIA [None]
  - PLATELET COUNT DECREASED [None]
  - CARDIAC DISORDER [None]
  - CONDUCTION DISORDER [None]
  - ABDOMINAL NEOPLASM [None]
  - DROP ATTACKS [None]
